FAERS Safety Report 9537680 (Version 1)
Quarter: 2013Q3

REPORT INFORMATION
  Report Type: Spontaneous
  Country: US (occurrence: US)
  Receive Date: 20130919
  Receipt Date: 20130919
  Transmission Date: 20140515
  Serious: Yes (Other)
  Sender: FDA-Public Use
  Company Number: CHPA2013US014083

PATIENT
  Age: 74 Year
  Sex: Male

DRUGS (2)
  1. MAALOX ANTACID/ANTIGAS MAX QDTABS ASST [Suspect]
     Indication: DYSPEPSIA
     Dosage: 1-2 DF, UNK
     Route: 048
  2. MAALOX ANTACID/ANTIGAS MAX QDTABS ASST [Suspect]
     Indication: FLATULENCE

REACTIONS (5)
  - Gallbladder injury [Unknown]
  - Biliary tract disorder [Unknown]
  - Gastrointestinal disorder [Unknown]
  - Flatulence [Unknown]
  - Disease recurrence [Unknown]
